FAERS Safety Report 16478613 (Version 3)
Quarter: 2020Q1

REPORT INFORMATION
  Report Type: Report from Study
  Country: None (occurrence: US)
  Receive Date: 20190626
  Receipt Date: 20200103
  Transmission Date: 20200409
  Serious: Yes (Hospitalization, Other)
  Sender: FDA-Public Use
  Company Number: US-ABBVIE-19K-163-2831867-00

PATIENT
  Sex: Female

DRUGS (1)
  1. HUMIRA [Suspect]
     Active Substance: ADALIMUMAB
     Indication: PSORIASIS
     Dosage: CITRATE FREE
     Route: 058

REACTIONS (14)
  - Rheumatoid arthritis [Not Recovered/Not Resolved]
  - Sciatica [Not Recovered/Not Resolved]
  - Back pain [Unknown]
  - Pain in extremity [Recovered/Resolved]
  - Exostosis [Unknown]
  - Arthropathy [Not Recovered/Not Resolved]
  - Skin papilloma [Not Recovered/Not Resolved]
  - Chronic kidney disease [Not Recovered/Not Resolved]
  - Fibrosis [Not Recovered/Not Resolved]
  - Gout [Not Recovered/Not Resolved]
  - Diabetes mellitus [Unknown]
  - Psoriasis [Unknown]
  - Exostosis [Recovered/Resolved]
  - Psoriatic arthropathy [Unknown]

NARRATIVE: CASE EVENT DATE: 2019
